FAERS Safety Report 6640876-0 (Version None)
Quarter: 2010Q1

REPORT INFORMATION
  Report Type: 
  Country: None (occurrence: None)
  Receive Date: 20100302
  Receipt Date: 20100122
  Transmission Date: 20100710
  Serious: No
  Sender: FDA-Public Use
  Company Number: 2010010363

PATIENT
  Age: 73 Year
  Sex: Male
  Weight: 95.3 kg

DRUGS (6)
  1. TOVIAZ [Suspect]
     Indication: HYPERTONIC BLADDER
     Dosage: 4 MG, 1X/DAY, ORAL
     Route: 048
  2. TAMSULOSIN HCL [Suspect]
     Indication: HYPERTONIC BLADDER
     Dosage: 0.8 MG, 1X/DAY, ORAL
     Route: 048
  3. BENICAR [Concomitant]
  4. METOPROLOL (METOPROLOL) [Concomitant]
  5. SYNTHROID [Concomitant]
  6. LIPITOR [Concomitant]

REACTIONS (2)
  - BLOOD PRESSURE INCREASED [None]
  - DRUG INEFFECTIVE [None]
